FAERS Safety Report 19432254 (Version 2)
Quarter: 2021Q2

REPORT INFORMATION
  Report Type: Spontaneous
  Country: DE (occurrence: DE)
  Receive Date: 20210618
  Receipt Date: 20210623
  Transmission Date: 20210717
  Serious: Yes (Hospitalization, Other)
  Sender: FDA-Public Use
  Company Number: DE-AUROBINDO-AUR-APL-2021-024784

PATIENT
  Age: 88 Year
  Sex: Female

DRUGS (6)
  1. RAMIPRIL. [Concomitant]
     Active Substance: RAMIPRIL
     Indication: PRODUCT USED FOR UNKNOWN INDICATION
     Dosage: 10 MILLIGRAM, TWO TIMES A DAY(5 MG, BID (1?0?1?0 DOSAGE FORM) )
     Route: 048
  2. VERAPAMIL 1 A PHARM [Suspect]
     Active Substance: VERAPAMIL HYDROCHLORIDE
     Indication: PRODUCT USED FOR UNKNOWN INDICATION
     Dosage: 240 MILLIGRAM, ONCE A DAY(80 MG, TID (0.5?0.5?0.5?0 DOSAGE FORM) )
     Route: 048
  3. MARCUMAR [Concomitant]
     Active Substance: PHENPROCOUMON
     Indication: PRODUCT USED FOR UNKNOWN INDICATION
     Dosage: ACCORDING TO INR
     Route: 048
  4. HYDROCHLOROTHIAZIDE  TABLETS [Suspect]
     Active Substance: HYDROCHLOROTHIAZIDE
     Indication: PRODUCT USED FOR UNKNOWN INDICATION
     Dosage: 25 MILLIGRAM, ONCE A DAY(25 MG, QD (0.5?.25?0?0 DOSAGE FORM)
     Route: 048
  5. FLECAINID 1A PHARMA [Suspect]
     Active Substance: FLECAINIDE ACETATE
     Indication: PRODUCT USED FOR UNKNOWN INDICATION
     Dosage: 200MILLIGRAM, ONCE A DAY(100 MG, BID (1?0?1?0 DOSAGE FORM))
     Route: 048
  6. FLECAINID 1A PHARMA [Suspect]
     Active Substance: FLECAINIDE ACETATE
     Dosage: 200 MILLIGRAM, ONCE A DAY

REACTIONS (5)
  - Dyspnoea exertional [Unknown]
  - Electrolyte imbalance [Unknown]
  - Renal impairment [Unknown]
  - Vertigo [Unknown]
  - General physical health deterioration [Unknown]
